FAERS Safety Report 8609324 (Version 6)
Quarter: 2017Q4

REPORT INFORMATION
  Report Type: Spontaneous
  Country: JP (occurrence: JP)
  Receive Date: 20120611
  Receipt Date: 20171205
  Transmission Date: 20180321
  Serious: Yes (Death, Hospitalization, Disabling, Other)
  Sender: FDA-Public Use
  Company Number: JP-BRISTOL-MYERS SQUIBB COMPANY-16671463

PATIENT
  Age: 40 Year
  Sex: Male
  Weight: 112 kg

DRUGS (9)
  1. LIMAS [Concomitant]
     Active Substance: LITHIUM CARBONATE
     Indication: SCHIZOPHRENIA
     Dosage: 200 MG, TID
     Route: 048
     Dates: start: 20070511, end: 20090723
  2. LORELCO [Suspect]
     Active Substance: PROBUCOL
     Indication: HYPERLIPIDAEMIA
     Dosage: 250 MG, BID
     Route: 048
     Dates: start: 20080403, end: 20090723
  3. SEROQUEL [Concomitant]
     Active Substance: QUETIAPINE FUMARATE
     Indication: SCHIZOPHRENIA
     Dosage: 100 MG, TID
     Route: 048
     Dates: start: 20080311, end: 20090723
  4. ZYLORIC [Concomitant]
     Active Substance: ALLOPURINOL
     Indication: PRODUCT USED FOR UNKNOWN INDICATION
     Dosage: 100 MG, BID
     Route: 048
     Dates: start: 20070511, end: 20090723
  5. ZOLOFT [Concomitant]
     Active Substance: SERTRALINE HYDROCHLORIDE
     Indication: SCHIZOPHRENIA
     Dosage: 25 MG, TID
     Route: 048
     Dates: start: 20080925, end: 20090723
  6. SERENACE [Concomitant]
     Active Substance: HALOPERIDOL
     Indication: SCHIZOPHRENIA
     Dosage: 3 MG, TID
     Route: 048
     Dates: start: 20070511, end: 20090723
  7. MAGNESIUMOXIDE [Concomitant]
     Active Substance: MAGNESIUM OXIDE
     Indication: PRODUCT USED FOR UNKNOWN INDICATION
     Dosage: 1 G, TID
     Route: 048
     Dates: start: 20070814, end: 20090723
  8. RISPERIDONE. [Concomitant]
     Active Substance: RISPERIDONE
     Indication: SCHIZOPHRENIA
     Dosage: 4 MG, TID
     Route: 048
     Dates: start: 20090715, end: 20090723
  9. ABILIFY [Suspect]
     Active Substance: ARIPIPRAZOLE
     Indication: SCHIZOPHRENIA
     Dosage: 18MG/DAY
     Route: 048
     Dates: start: 20090624, end: 20090721

REACTIONS (7)
  - Delirium [Unknown]
  - Rhabdomyolysis [Fatal]
  - Retroperitoneal haemorrhage [Fatal]
  - Agitation [Unknown]
  - Suicide attempt [Not Recovered/Not Resolved]
  - Restlessness [Unknown]
  - Aggression [Unknown]

NARRATIVE: CASE EVENT DATE: 200907
